FAERS Safety Report 5570058-5 (Version None)
Quarter: 2007Q4

REPORT INFORMATION
  Report Type: 
  Country: None (occurrence: None)
  Receive Date: 20071214
  Receipt Date: 20071211
  Transmission Date: 20080405
  Serious: Yes (Life-Threatening, Hospitalization)
  Sender: FDA-Public Use
  Company Number: 229-C5013-07120614

PATIENT
  Age: 74 Year
  Sex: Female
  Weight: 56.1 kg

DRUGS (3)
  1. CC-5013 (LENALIDOMIDE) (CAPSULES) [Suspect]
     Indication: MULTIPLE MYELOMA
     Dosage: ORAL; 25 MG, OD, ORAL
     Route: 048
     Dates: end: 20071015
  2. CC-5013 (LENALIDOMIDE) (CAPSULES) [Suspect]
     Indication: MULTIPLE MYELOMA
     Dosage: ORAL; 25 MG, OD, ORAL
     Route: 048
     Dates: start: 20071105, end: 20071207
  3. DEXAMETHASONE TAB [Suspect]
     Indication: MULTIPLE MYELOMA
     Dosage: 40 MG, QD, D1-4
     Dates: start: 20071203, end: 20071206

REACTIONS (8)
  - ATRIAL FIBRILLATION [None]
  - CARDIOMEGALY [None]
  - HYPERTHYROIDISM [None]
  - NEUTROPENIC SEPSIS [None]
  - PNEUMONIA [None]
  - PULMONARY OEDEMA [None]
  - RENAL FAILURE ACUTE [None]
  - THROMBOCYTOPENIA [None]
